FAERS Safety Report 19321638 (Version 1)
Quarter: 2021Q2

REPORT INFORMATION
  Report Type: Spontaneous
  Country: US (occurrence: US)
  Receive Date: 20210528
  Receipt Date: 20210528
  Transmission Date: 20210717
  Serious: Yes (Other)
  Sender: FDA-Public Use
  Company Number: None

PATIENT
  Age: 77 Year
  Sex: Female
  Weight: 57.9 kg

DRUGS (1)
  1. GADAVIST [Suspect]
     Active Substance: GADOBUTROL
     Indication: MENTAL STATUS CHANGES
     Dates: start: 20210507, end: 20210507

REACTIONS (1)
  - Mental status changes [None]

NARRATIVE: CASE EVENT DATE: 20210507
